FAERS Safety Report 22161825 (Version 1)
Quarter: 2023Q1

REPORT INFORMATION
  Report Type: Spontaneous
  Country: CN (occurrence: CN)
  Receive Date: 20230331
  Receipt Date: 20230331
  Transmission Date: 20230418
  Serious: Yes (Life-Threatening)
  Sender: FDA-Public Use
  Company Number: CN-BAUSCH-BL-2023-004868

PATIENT
  Sex: Female
  Weight: 1.27 kg

DRUGS (6)
  1. ISOPROTERENOL [Suspect]
     Active Substance: ISOPROTERENOL
     Indication: Heart rate decreased
     Route: 065
  2. ISOPROTERENOL [Suspect]
     Active Substance: ISOPROTERENOL
     Indication: Blood pressure decreased
  3. ISOPROTERENOL [Suspect]
     Active Substance: ISOPROTERENOL
     Indication: Acidosis
  4. DEXAMETHASONE [Concomitant]
     Active Substance: DEXAMETHASONE
     Indication: Immunosuppression
  5. HUMAN IMMUNOGLOBULIN G [Concomitant]
     Active Substance: HUMAN IMMUNOGLOBULIN G
     Indication: Inhibiting antibodies
     Dosage: 1.2 G X 1 TIME
  6. SILDENAFIL [Concomitant]
     Active Substance: SILDENAFIL
     Indication: Pulmonary arterial pressure increased

REACTIONS (1)
  - Therapeutic product effect incomplete [Unknown]
